FAERS Safety Report 8557883 (Version 2)
Quarter: 2012Q4

REPORT INFORMATION
  Report Type: 
  Country: US (occurrence: US)
  Receive Date: 20120511
  Receipt Date: 20121101
  Transmission Date: 20130627
  Serious: Yes (Other)
  Sender: FDA-Public Use
  Company Number: US-ASTRAZENECA-2012SE29143

PATIENT
  Age: 57 Year
  Sex: Female

DRUGS (6)
  1. NEXIUM [Suspect]
     Indication: GASTROOESOPHAGEAL REFLUX DISEASE
     Route: 048
     Dates: start: 2005
  2. RHINOCORT AQUA [Suspect]
     Indication: SEASONAL ALLERGY
     Dosage: 2 SPRAYS IN EACH NOSTRIL ONCE DAY
     Route: 045
     Dates: start: 2009
  3. TOPROL XL [Suspect]
     Indication: HYPERTENSION
     Route: 048
  4. SEROQUEL XR [Suspect]
     Indication: ANXIETY
     Route: 048
     Dates: start: 2009
  5. SEROQUEL XR [Suspect]
     Indication: DEPRESSION
     Route: 048
     Dates: start: 2009
  6. SEROQUEL XR [Suspect]
     Indication: MAJOR DEPRESSION
     Route: 048
     Dates: start: 2009

REACTIONS (8)
  - Transient ischaemic attack [Unknown]
  - Visual impairment [Unknown]
  - Aphasia [Unknown]
  - Hypoaesthesia [Unknown]
  - Fatigue [Unknown]
  - Hypertension [Unknown]
  - Vision blurred [Unknown]
  - Drug dose omission [Unknown]
